FAERS Safety Report 4369754-7 (Version None)
Quarter: 2004Q2

REPORT INFORMATION
  Report Type: 
  Country: None (occurrence: None)
  Receive Date: 20040528
  Receipt Date: 20040521
  Transmission Date: 20050107
  Serious: Yes (Hospitalization)
  Sender: FDA-Public Use
  Company Number: US-AMGEN-US077194

PATIENT
  Age: 53 Year
  Sex: Male
  Weight: 86.3 kg

DRUGS (10)
  1. ARANESP [Suspect]
     Indication: RENAL FAILURE CHRONIC
     Dosage: 200 MCG, 1 IN 1 WEEKS, SC
     Route: 058
     Dates: start: 20030101, end: 20040510
  2. MYCOPHENOLATE MOFETIL [Suspect]
     Indication: RENAL TRANSPLANT
     Dosage: 1 G, 2 IN 1 DAYS
     Dates: start: 20031205
  3. ALLOPURINOL [Concomitant]
  4. SIROLIMUS [Concomitant]
  5. WARFARIN SODIUM [Concomitant]
  6. ENOXAPARIN SODIUM [Concomitant]
  7. DIGOXIN [Concomitant]
  8. DIATX [Concomitant]
  9. FUROSEMIDE [Concomitant]
  10. PREDNISONE [Concomitant]

REACTIONS (5)
  - AUTOANTIBODY POSITIVE [None]
  - BONE MARROW DEPRESSION [None]
  - FAECAL OCCULT BLOOD POSITIVE [None]
  - HAEMOGLOBIN DECREASED [None]
  - THERAPEUTIC RESPONSE DECREASED [None]
